FAERS Safety Report 22181969 (Version 2)
Quarter: 2023Q2

REPORT INFORMATION
  Report Type: Spontaneous
  Country: BR (occurrence: BR)
  Receive Date: 20230406
  Receipt Date: 20230518
  Transmission Date: 20230721
  Serious: Yes (Other)
  Sender: FDA-Public Use
  Company Number: BR-009507513-1903BRA006609

PATIENT
  Sex: Female
  Weight: 55 kg

DRUGS (13)
  1. LOSARTAN POTASSIUM [Suspect]
     Active Substance: LOSARTAN POTASSIUM
     Indication: Hypertension
     Dosage: 160 MILLIGRAM, UNK
     Route: 048
  2. JANUVIA [Suspect]
     Active Substance: SITAGLIPTIN PHOSPHATE
     Indication: Blood glucose abnormal
     Dosage: 50 MG (1 TABLET PER DAY), QD
     Route: 048
     Dates: start: 2020
  3. JANUVIA [Suspect]
     Active Substance: SITAGLIPTIN PHOSPHATE
     Dosage: 1 DOSAGE FORM, DAILY (QD), BEFORE LUNCH
     Route: 048
     Dates: start: 2011, end: 2020
  4. JANUVIA [Suspect]
     Active Substance: SITAGLIPTIN PHOSPHATE
     Dosage: 0.5 (HALF TABLET) DOSAGE FORM, DAILY (QD)
     Route: 048
     Dates: start: 2020
  5. JANUVIA [Suspect]
     Active Substance: SITAGLIPTIN PHOSPHATE
     Dosage: 100 MG, 1 TABLET BEFORE LUNCH, QD
     Route: 048
  6. LANTUS [Suspect]
     Active Substance: INSULIN GLARGINE
     Indication: Blood glucose abnormal
     Dosage: 14 INTERNATIONAL UNIT IN THE MORNING
  7. GLIFAGE [Suspect]
     Active Substance: METFORMIN HYDROCHLORIDE
     Indication: Blood glucose abnormal
     Dosage: 150 MG, AFTER BREAKFAST AND AFTER COFFEE NIGHT
  8. INSULIN NOS [Suspect]
     Active Substance: INSULIN NOS
     Dosage: UNK
  9. SIMVASTATIN [Concomitant]
     Active Substance: SIMVASTATIN
     Indication: Hypertension
     Dosage: UNK
  10. ATENOLOL [Concomitant]
     Active Substance: ATENOLOL
     Indication: Hypertension
     Dosage: 25 MILLIGRAM
  11. LIPTOR [ATORVASTATIN] [Concomitant]
     Indication: Hypertension
     Dosage: 40 MILLIGRAM
  12. CALCIUM [Concomitant]
     Active Substance: CALCIUM
     Indication: Osteoporosis
     Dosage: UNK
  13. ASPIRIN [Concomitant]
     Active Substance: ASPIRIN
     Indication: Anticoagulant therapy
     Dosage: UNK

REACTIONS (7)
  - Diabetes mellitus inadequate control [Unknown]
  - Cataract [Unknown]
  - Glaucoma [Unknown]
  - Corneal leukoma [Unknown]
  - Decreased activity [Unknown]
  - Hypophagia [Unknown]
  - Hypoglycaemia [Unknown]

NARRATIVE: CASE EVENT DATE: 20200101
